FAERS Safety Report 18271947 (Version 1)
Quarter: 2020Q3

REPORT INFORMATION
  Report Type: Report from Study
  Country: CA (occurrence: CA)
  Receive Date: 20200916
  Receipt Date: 20200916
  Transmission Date: 20201103
  Serious: Yes (Other)
  Sender: FDA-Public Use
  Company Number: CA-BAUSCH-BL-2018-034456

PATIENT
  Age: 61 Year
  Sex: Female

DRUGS (4)
  1. SILIQ [Suspect]
     Active Substance: BRODALUMAB
     Dosage: 210 MG/ 1.5 ML?LAST INJECTION ON 03/OCT/2019
     Route: 058
     Dates: start: 2019
  2. SILIQ [Suspect]
     Active Substance: BRODALUMAB
     Dosage: 210 MG/ 1.5 ML
     Route: 058
     Dates: start: 201901, end: 2019
  3. SILIQ [Suspect]
     Active Substance: BRODALUMAB
     Dosage: 210 MG/ 1.5 ML
     Route: 058
     Dates: start: 2018, end: 20190103
  4. SILIQ [Suspect]
     Active Substance: BRODALUMAB
     Indication: PSORIASIS
     Dosage: 210 MG/ 1.5 ML
     Route: 058
     Dates: start: 20180919, end: 201810

REACTIONS (15)
  - Erythema [Recovered/Resolved]
  - Osteoarthritis [Not Recovered/Not Resolved]
  - Decreased immune responsiveness [Unknown]
  - Gastric disorder [Unknown]
  - Surgery [Unknown]
  - Pain [Recovered/Resolved]
  - Therapy interrupted [Unknown]
  - Cough [Recovering/Resolving]
  - Memory impairment [Not Recovered/Not Resolved]
  - Back pain [Not Recovered/Not Resolved]
  - Nasopharyngitis [Unknown]
  - Herpes zoster [Recovered/Resolved]
  - Sinusitis [Recovering/Resolving]
  - Product dose omission in error [Unknown]
  - Influenza [Recovering/Resolving]

NARRATIVE: CASE EVENT DATE: 20181206
